FAERS Safety Report 11735556 (Version 1)
Quarter: 2015Q4

REPORT INFORMATION
  Report Type: Spontaneous
  Country: US (occurrence: US)
  Receive Date: 20151110
  Receipt Date: 20151110
  Transmission Date: 20160304
  Serious: No
  Sender: FDA-Public Use
  Company Number: US-ELI_LILLY_AND_COMPANY-US201202000146

PATIENT
  Age: 81 Year
  Sex: Female

DRUGS (2)
  1. FORTEO [Suspect]
     Active Substance: TERIPARATIDE
     Indication: OSTEOPOROSIS
     Dosage: 20 UG, QD
     Dates: start: 20120127
  2. FORTEO [Suspect]
     Active Substance: TERIPARATIDE
     Dosage: 20 UG, QD
     Dates: end: 20120201

REACTIONS (13)
  - Bone disorder [Unknown]
  - Back pain [Not Recovered/Not Resolved]
  - Spinal fracture [Unknown]
  - Back disorder [Unknown]
  - Arthralgia [Not Recovered/Not Resolved]
  - Pain [Recovered/Resolved]
  - Spinal column stenosis [Unknown]
  - Feeling abnormal [Recovering/Resolving]
  - Gait disturbance [Unknown]
  - Malaise [Unknown]
  - Dizziness [Recovering/Resolving]
  - Spinal disorder [Unknown]
  - Intentional product misuse [Not Recovered/Not Resolved]

NARRATIVE: CASE EVENT DATE: 20120127
